FAERS Safety Report 7163347-4 (Version None)
Quarter: 2010Q4

REPORT INFORMATION
  Report Type: 
  Country: None (occurrence: None)
  Receive Date: 20101215
  Receipt Date: 20100401
  Transmission Date: 20110411
  Serious: Yes (Hospitalization)
  Sender: FDA-Public Use
  Company Number: FR-PFIZER INC-2010042138

PATIENT
  Age: 21 Year
  Sex: Male

DRUGS (1)
  1. LYRICA [Suspect]
     Dosage: UNK
     Dates: start: 20090101

REACTIONS (2)
  - HALLUCINATION [None]
  - INCOHERENT [None]
